FAERS Safety Report 7081662-X (Version None)
Quarter: 2010Q4

REPORT INFORMATION
  Report Type: 
  Country: None (occurrence: None)
  Receive Date: 20101103
  Receipt Date: 20101026
  Transmission Date: 20110411
  Serious: Yes (Death)
  Sender: FDA-Public Use
  Company Number: US-CELGENEUS-163-21880-10082128

PATIENT
  Sex: Female

DRUGS (3)
  1. REVLIMID [Suspect]
     Route: 048
     Dates: start: 20061101, end: 20070101
  2. REVLIMID [Suspect]
     Indication: MYELOFIBROSIS
     Dosage: 5-15MG
     Route: 048
     Dates: start: 20070319, end: 20080101
  3. REVLIMID [Suspect]
     Route: 048
     Dates: start: 20080401, end: 20100628

REACTIONS (1)
  - POLYCYTHAEMIA VERA [None]
